FAERS Safety Report 6004711-6 (Version None)
Quarter: 2008Q4

REPORT INFORMATION
  Report Type: 
  Country: None (occurrence: None)
  Receive Date: 20081216
  Receipt Date: 20081211
  Transmission Date: 20090506
  Serious: Yes (Hospitalization, Other)
  Sender: FDA-Public Use
  Company Number: ES-ROXANE LABORATORIES, INC.-2008-RO-00402RO

PATIENT
  Age: 21 Year
  Sex: Male

DRUGS (8)
  1. MYCOPHENOLATE MOFETIL [Suspect]
     Indication: PROPHYLAXIS AGAINST TRANSPLANT REJECTION
     Dosage: 1G
  2. PREDNISONE TAB [Suspect]
     Indication: PROPHYLAXIS AGAINST TRANSPLANT REJECTION
  3. TACROLIMUS [Suspect]
     Indication: PROPHYLAXIS AGAINST TRANSPLANT REJECTION
  4. AMOXICILLIN AND CLAVULANATE POTASSIUM [Concomitant]
     Indication: RESPIRATORY TRACT INFECTION
     Dosage: 3G
     Route: 042
  5. LEVOFLOXACIN [Concomitant]
     Indication: RESPIRATORY TRACT INFECTION
     Dosage: 500MG
     Route: 048
  6. ISONIAZID [Concomitant]
     Indication: TUBERCULOSIS
  7. RIFAMPICIN [Concomitant]
     Indication: TUBERCULOSIS
  8. PIRAZINAMIDE [Concomitant]
     Indication: TUBERCULOSIS

REACTIONS (2)
  - RENAL IMPAIRMENT [None]
  - TUBERCULOSIS [None]
